FAERS Safety Report 4575733-7 (Version None)
Quarter: 2005Q1

REPORT INFORMATION
  Report Type: 
  Country: None (occurrence: None)
  Receive Date: 20050201
  Receipt Date: 20050201
  Transmission Date: 20050727
  Serious: No
  Sender: FDA-Public Use
  Company Number: None

PATIENT
  Sex: Female
  Weight: 59.8748 kg

DRUGS (1)
  1. MERREM [Suspect]
     Indication: PERIARTHRITIS
     Dosage: 1 GM IV Q 12H
     Route: 042

REACTIONS (1)
  - PRURITUS GENERALISED [None]
